FAERS Safety Report 6415943-7 (Version None)
Quarter: 2009Q4

REPORT INFORMATION
  Report Type: 
  Country: None (occurrence: None)
  Receive Date: 20091027
  Receipt Date: 20091016
  Transmission Date: 20100525
  Serious: Yes (Hospitalization)
  Sender: FDA-Public Use
  Company Number: B0573232A

PATIENT
  Sex: Male

DRUGS (5)
  1. FLUTICASONE [Suspect]
     Indication: ASTHMA
     Route: 055
  2. ATAZANAVIR [Suspect]
     Indication: HIV INFECTION
     Dosage: 300MG PER DAY
     Route: 065
  3. RITONAVIR [Suspect]
     Indication: HIV INFECTION
     Dosage: 100MG PER DAY
  4. LAMIVUDINE + ZIDOVUDINE [Concomitant]
     Indication: HIV INFECTION
     Route: 065
  5. INVIRASE [Concomitant]
     Indication: HIV INFECTION

REACTIONS (19)
  - ADRENAL INSUFFICIENCY [None]
  - ASTHENIA [None]
  - BLOOD CORTICOTROPHIN DECREASED [None]
  - BLOOD CORTISOL DECREASED [None]
  - BLOOD THYROID STIMULATING HORMONE DECREASED [None]
  - CENTRAL OBESITY [None]
  - CUSHING'S SYNDROME [None]
  - CUSHINGOID [None]
  - DEHYDRATION [None]
  - DIABETES MELLITUS [None]
  - DRUG INTERACTION [None]
  - HYPERKALAEMIA [None]
  - HYPOGLYCAEMIA [None]
  - HYPONATRAEMIA [None]
  - HYPOTHALAMO-PITUITARY DISORDER [None]
  - SKIN STRIAE [None]
  - THYROXINE FREE DECREASED [None]
  - TREMOR [None]
  - TRI-IODOTHYRONINE FREE DECREASED [None]
